FAERS Safety Report 5034564-4 (Version None)
Quarter: 2006Q2

REPORT INFORMATION
  Report Type: 
  Country: None (occurrence: None)
  Receive Date: 20060620
  Receipt Date: 20060619
  Transmission Date: 20061013
  Serious: Yes (Other)
  Sender: FDA-Public Use
  Company Number: 223834

PATIENT
  Sex: Female
  Weight: 40 kg

DRUGS (1)
  1. HERCEPTIN [Suspect]
     Indication: NEOPLASM MALIGNANT
     Dosage: INTRAVENOUS

REACTIONS (3)
  - AGITATION [None]
  - DEPRESSION [None]
  - TREMOR [None]
